FAERS Safety Report 12783292 (Version 1)
Quarter: 2016Q3

REPORT INFORMATION
  Report Type: Spontaneous
  Country: US (occurrence: US)
  Receive Date: 20160927
  Receipt Date: 20160927
  Transmission Date: 20161109
  Serious: Yes (Death)
  Sender: FDA-Public Use
  Company Number: US-VANDA PHARMACEUTICALS, INC-2016ILOUS001558

PATIENT
  Age: 30 Year
  Sex: Male
  Weight: 102.4 kg

DRUGS (1)
  1. FANAPT [Suspect]
     Active Substance: ILOPERIDONE
     Indication: SCHIZOPHRENIA
     Dosage: 12 MG, BID
     Route: 048

REACTIONS (2)
  - Death [Fatal]
  - Drug effect decreased [Unknown]

NARRATIVE: CASE EVENT DATE: 201605
